APPROVED DRUG PRODUCT: NORETHINDRONE AND ETHINYL ESTRADIOL AND FERROUS FUMARATE
Active Ingredient: ETHINYL ESTRADIOL; NORETHINDRONE
Strength: 0.035MG;0.4MG
Dosage Form/Route: TABLET;ORAL
Application: A091332 | Product #001 | TE Code: AB
Applicant: LUPIN LTD
Approved: Mar 23, 2016 | RLD: No | RS: No | Type: RX